FAERS Safety Report 19052600 (Version 1)
Quarter: 2021Q1

REPORT INFORMATION
  Report Type: Report from Study
  Country: US (occurrence: US)
  Receive Date: 20210324
  Receipt Date: 20210324
  Transmission Date: 20210420
  Serious: Yes (Other)
  Sender: FDA-Public Use
  Company Number: US-INCYTE CORPORATION-2021IN002190

PATIENT

DRUGS (1)
  1. JAKAFI [Suspect]
     Active Substance: RUXOLITINIB
     Indication: MYELOFIBROSIS
     Dosage: 4 MILLIGRAM, QD
     Route: 065

REACTIONS (4)
  - Toxicity to various agents [Unknown]
  - Renal impairment [Unknown]
  - Wrong technique in product usage process [Unknown]
  - Anaemia [Unknown]
